FAERS Safety Report 4747025-4 (Version None)
Quarter: 2005Q3

REPORT INFORMATION
  Report Type: 
  Country: None (occurrence: None)
  Receive Date: 20050817
  Receipt Date: 20050805
  Transmission Date: 20060218
  Serious: Yes (Congenital Anomaly, Other)
  Sender: FDA-Public Use
  Company Number: US-BRISTOL-MYERS SQUIBB COMPANY-13074588

PATIENT
  Age: 1 Day
  Sex: Female
  Weight: 2 kg

DRUGS (6)
  1. REYATAZ [Suspect]
     Dosage: TAKEN AT CONCEPTION.
     Route: 064
     Dates: start: 20030923
  2. VIDEX [Suspect]
     Dosage: TAKEN AT CONCEPTION.
     Route: 064
     Dates: start: 20040928, end: 20050209
  3. NORVIR [Suspect]
     Dosage: TAKEN AT CONCEPTION.
     Route: 064
     Dates: start: 20030923
  4. EPIVIR [Suspect]
     Dosage: TAKEN AT CONCEPTION.
     Route: 064
     Dates: start: 20040323
  5. VIREAD [Suspect]
     Route: 064
     Dates: start: 20050209
  6. RETROVIR [Suspect]
     Route: 064
     Dates: start: 20050802, end: 20050803

REACTIONS (3)
  - BRADYCARDIA [None]
  - FOETAL GROWTH RETARDATION [None]
  - PREGNANCY [None]
